FAERS Safety Report 17033552 (Version 1)
Quarter: 2019Q4

REPORT INFORMATION
  Report Type: Spontaneous
  Country: US (occurrence: US)
  Receive Date: 20191114
  Receipt Date: 20191114
  Transmission Date: 20200122
  Serious: No
  Sender: FDA-Public Use
  Company Number: US-BAUSCH-BL-2019-024098

PATIENT
  Age: 40 Year
  Sex: Female

DRUGS (1)
  1. TRULANCE [Suspect]
     Active Substance: PLECANATIDE
     Indication: CONSTIPATION
     Route: 048
     Dates: start: 20190306

REACTIONS (3)
  - Therapeutic product effect decreased [Unknown]
  - Treatment noncompliance [Unknown]
  - Diarrhoea [Not Recovered/Not Resolved]

NARRATIVE: CASE EVENT DATE: 2019
